FAERS Safety Report 20445621 (Version 1)
Quarter: 2022Q1

REPORT INFORMATION
  Report Type: Spontaneous
  Country: US (occurrence: None)
  Receive Date: 20220208
  Receipt Date: 20220208
  Transmission Date: 20220423
  Serious: Yes (Other)
  Sender: FDA-Public Use
  Company Number: None

PATIENT
  Age: 71 Year
  Sex: Female
  Weight: 65.56 kg

DRUGS (13)
  1. CAPECITABINE [Suspect]
     Active Substance: CAPECITABINE
     Indication: Breast cancer female
     Dosage: OTHER FREQUENCY : BIDX2 WEEKS, 1 OFF;?
     Route: 048
     Dates: start: 20211124
  2. LYRICA [Concomitant]
     Active Substance: PREGABALIN
  3. ANASTROZOLE [Concomitant]
     Active Substance: ANASTROZOLE
  4. ATORVASTATIN [Concomitant]
     Active Substance: ATORVASTATIN
  5. CALCIUM/VITAMIN D 600-400MG [Concomitant]
  6. LASIX 20MG [Concomitant]
  7. VITAMINS [Concomitant]
     Active Substance: VITAMINS
  8. POTASSIUM CHLORIDE [Concomitant]
     Active Substance: POTASSIUM CHLORIDE
  9. XARELTO [Concomitant]
     Active Substance: RIVAROXABAN
  10. ENTRESTO 24-26MG [Concomitant]
  11. ASPIRIN [Concomitant]
     Active Substance: ASPIRIN
  12. FUROSEMIDE [Concomitant]
     Active Substance: FUROSEMIDE
  13. PREGABALIN [Concomitant]
     Active Substance: PREGABALIN

REACTIONS (2)
  - Blister [None]
  - Skin exfoliation [None]

NARRATIVE: CASE EVENT DATE: 20220125
